FAERS Safety Report 5690308-4 (Version None)
Quarter: 2008Q1

REPORT INFORMATION
  Report Type: 
  Country: None (occurrence: None)
  Receive Date: 20080331
  Receipt Date: 20080331
  Transmission Date: 20080703
  Serious: Yes (Hospitalization, Disabling)
  Sender: FDA-Public Use
  Company Number: None

PATIENT
  Sex: Female
  Weight: 63 kg

DRUGS (3)
  1. BEVACIZUMAB 10MG/KG GENENTECH [Suspect]
     Indication: PANCREATIC CARCINOMA METASTATIC
     Dosage: 640 KGS Q2WKS IV
     Route: 042
     Dates: start: 20070621, end: 20080320
  2. GEMCITABINE [Concomitant]
  3. DOCETAXEL [Concomitant]

REACTIONS (4)
  - CATHETER RELATED INFECTION [None]
  - HEADACHE [None]
  - IMPLANT SITE PAIN [None]
  - PYREXIA [None]
